FAERS Safety Report 5814547-4 (Version None)
Quarter: 2008Q3

REPORT INFORMATION
  Report Type: 
  Country: None (occurrence: None)
  Receive Date: 20080715
  Receipt Date: 20080701
  Transmission Date: 20090109
  Serious: Yes (Hospitalization)
  Sender: FDA-Public Use
  Company Number: 2008S1011463

PATIENT
  Age: 73 Year
  Sex: Male

DRUGS (3)
  1. CLARITHROMYCIN [Suspect]
     Indication: PNEUMONIA
  2. COLCHICINE (COLCHICINE) [Suspect]
     Indication: GOUTY ARTHRITIS
     Dosage: 0.5 MG; DAILY, 0.5 MG; DAILY
  3. SIMVASTATIN [Concomitant]

REACTIONS (5)
  - DRUG INTERACTION [None]
  - DRUG TOXICITY [None]
  - NEUROMYOPATHY [None]
  - PANCYTOPENIA [None]
  - POLYNEUROPATHY [None]
